FAERS Safety Report 26170693 (Version 1)
Quarter: 2025Q4

REPORT INFORMATION
  Report Type: Spontaneous
  Country: US (occurrence: None)
  Receive Date: 20251217
  Receipt Date: 20251217
  Transmission Date: 20260117
  Serious: Yes (Hospitalization)
  Sender: FDA-CTU
  Company Number: None

PATIENT
  Age: 58 Year
  Sex: Male

DRUGS (8)
  1. ZIEXTENZO [Suspect]
     Active Substance: PEGFILGRASTIM-BMEZ
     Indication: Lip and/or oral cavity cancer
     Dosage: OTHER QUANTITY : 1 SYRINGE UNDER THE SKIN ;?FREQUENCY : AS DIRECTED;
     Route: 058
     Dates: start: 20250717
  2. FENTANYL [Concomitant]
     Active Substance: FENTANYL
  3. LEUKINE [Concomitant]
     Active Substance: SARGRAMOSTIM
  4. LEVOFLOXACIN [Concomitant]
     Active Substance: LEVOFLOXACIN
  5. ONDANSETRON [Concomitant]
     Active Substance: ONDANSETRON
  6. OXYCODONE [Concomitant]
     Active Substance: OXYCODONE
  7. PEPCID AC [Concomitant]
     Active Substance: FAMOTIDINE
  8. PRILOCAINE [Concomitant]
     Active Substance: PRILOCAINE

REACTIONS (2)
  - Urinary tract infection [None]
  - Nephrolithiasis [None]

NARRATIVE: CASE EVENT DATE: 20251201
